FAERS Safety Report 8307652-4 (Version None)
Quarter: 2012Q2

REPORT INFORMATION
  Report Type: 
  Country: None (occurrence: None)
  Receive Date: 20120424
  Receipt Date: 20120424
  Transmission Date: 20120825
  Serious: Yes (Hospitalization)
  Sender: FDA-Public Use
  Company Number: None

PATIENT
  Age: 84 Year
  Sex: Male

DRUGS (13)
  1. LISINOPRIL [Concomitant]
  2. VITAMIN D [Concomitant]
  3. LUMIGAN [Concomitant]
  4. FUROSEMIDE [Concomitant]
  5. LIPITOR [Concomitant]
  6. FISH OIL [Concomitant]
  7. FOLIC ACID [Concomitant]
  8. ASCORBIC ACID [Concomitant]
  9. SOTALOL HCL [Concomitant]
  10. POTASSIUM CHLORIDE [Concomitant]
  11. COSIPT [Concomitant]
  12. WARFARIN SODIUM [Suspect]
     Indication: ATRIAL FIBRILLATION
     Dosage: 2.5MG
     Route: 048
  13. WARFARIN SODIUM [Concomitant]
     Dosage: 5MG
     Route: 048

REACTIONS (2)
  - DYSPNOEA [None]
  - MELAENA [None]
